FAERS Safety Report 23421773 (Version 2)
Quarter: 2025Q2

REPORT INFORMATION
  Report Type: Spontaneous
  Country: FR (occurrence: FR)
  Receive Date: 20240119
  Receipt Date: 20250425
  Transmission Date: 20250717
  Serious: Yes (Other)
  Sender: MYLAN
  Company Number: FR-BIOCON-BBL2023001935

PATIENT

DRUGS (6)
  1. LEUCOVORIN CALCIUM [Suspect]
     Active Substance: LEUCOVORIN CALCIUM
     Indication: Cholangiocarcinoma
     Dosage: Q2W (200 MG/M2, Q2W (OVER 120 MIN)
  2. FLUOROURACIL [Suspect]
     Active Substance: FLUOROURACIL
     Indication: Cholangiocarcinoma
     Dosage: Q2W (400 MG/M2, Q2W)
  3. FLUOROURACIL [Suspect]
     Active Substance: FLUOROURACIL
     Dosage: Q2W (2400 MG/M2, Q2W (OVER 46 HOURS)
  4. IRINOTECAN [Suspect]
     Active Substance: IRINOTECAN
     Indication: Cholangiocarcinoma
     Dosage: Q2W (180 MG/M2, Q2W (OVER 90 MIN))
  5. BEVACIZUMAB [Suspect]
     Active Substance: BEVACIZUMAB
     Indication: Cholangiocarcinoma
     Dosage: Q2W (5 MG/KG, Q2W (OVER 90 MIN)
  6. LEUCOVORIN [Suspect]
     Active Substance: LEUCOVORIN\LEUCOVORIN CALCIUM
     Indication: Cholangiocarcinoma
     Dosage: 200 MILLIGRAM/SQ. METER, Q2W (OVER 120 MIN)

REACTIONS (1)
  - Gastrointestinal haemorrhage [Unknown]
